FAERS Safety Report 14181506 (Version 2)
Quarter: 2018Q1

REPORT INFORMATION
  Report Type: Spontaneous
  Country: FR (occurrence: FR)
  Receive Date: 20171112
  Receipt Date: 20180104
  Transmission Date: 20180508
  Serious: Yes (Death)
  Sender: FDA-Public Use
  Company Number: FR-ROCHE-2021439

PATIENT
  Age: 72 Year
  Sex: Female
  Weight: 49 kg

DRUGS (14)
  1. CARBOPLATIN ACCORD [Concomitant]
     Active Substance: CARBOPLATIN
     Dosage: 10MG/ML
     Route: 041
     Dates: start: 20170615, end: 20170713
  2. METFORMIN [Concomitant]
     Active Substance: METFORMIN HYDROCHLORIDE
     Route: 065
  3. HERCEPTIN [Suspect]
     Active Substance: TRASTUZUMAB
     Indication: CHEMOTHERAPY
     Route: 042
     Dates: start: 20170615, end: 20170713
  4. PACLITAXEL KABI [Concomitant]
     Active Substance: PACLITAXEL
     Indication: CHEMOTHERAPY
     Route: 042
     Dates: start: 20170615, end: 20170713
  5. RAMIPRIL. [Concomitant]
     Active Substance: RAMIPRIL
     Route: 065
  6. SITAGLIPTIN [Concomitant]
     Active Substance: SITAGLIPTIN
     Route: 065
     Dates: start: 20170615, end: 20170713
  7. LEVOTHYROX [Concomitant]
     Active Substance: LEVOTHYROXINE
  8. JANUVIA [Concomitant]
     Active Substance: SITAGLIPTIN PHOSPHATE
  9. EPIRUBICIN [Concomitant]
     Active Substance: EPIRUBICIN
  10. 5-FLUOROURACIL [Concomitant]
     Active Substance: FLUOROURACIL
  11. CYCLOPHOSPHAMIDE. [Concomitant]
     Active Substance: CYCLOPHOSPHAMIDE
  12. RBC TRANSFUSION [Concomitant]
     Dosage: 2 UNIT
     Route: 065
  13. BISOPROLOL [Concomitant]
     Active Substance: BISOPROLOL
     Route: 065
  14. OMEPRAZOLE. [Concomitant]
     Active Substance: OMEPRAZOLE

REACTIONS (2)
  - Left ventricular dysfunction [Fatal]
  - Pulmonary oedema [Fatal]

NARRATIVE: CASE EVENT DATE: 20170720
